FAERS Safety Report 14562165 (Version 1)
Quarter: 2018Q1

REPORT INFORMATION
  Report Type: Spontaneous
  Country: US (occurrence: US)
  Receive Date: 20180221
  Receipt Date: 20180221
  Transmission Date: 20180509
  Serious: Yes (Other)
  Sender: FDA-Public Use
  Company Number: None

PATIENT
  Age: 65 Year
  Sex: Male
  Weight: 78.3 kg

DRUGS (16)
  1. TEMOZOLOMIDE. [Suspect]
     Active Substance: TEMOZOLOMIDE
     Indication: BRAIN NEOPLASM MALIGNANT
     Route: 048
     Dates: start: 20170714
  2. LISINOPRIL. [Concomitant]
     Active Substance: LISINOPRIL
  3. LIDOCAINE. [Concomitant]
     Active Substance: LIDOCAINE
  4. FIORICET/CODEINE [Concomitant]
  5. DULCOLAX NOS [Concomitant]
     Active Substance: BISACODYL OR DOCUSATE SODIUM
  6. COLACE [Concomitant]
     Active Substance: DOCUSATE SODIUM
  7. ATORVASTATIN [Concomitant]
     Active Substance: ATORVASTATIN
  8. NOVOLOG [Concomitant]
     Active Substance: INSULIN ASPART
  9. DEXAMETHASONE. [Concomitant]
     Active Substance: DEXAMETHASONE
  10. JANUVIA [Concomitant]
     Active Substance: SITAGLIPTIN PHOSPHATE
  11. ATENOLOL. [Concomitant]
     Active Substance: ATENOLOL
  12. NIACIN. [Concomitant]
     Active Substance: NIACIN
  13. KEPPRA [Concomitant]
     Active Substance: LEVETIRACETAM
  14. FLORANEX [Concomitant]
     Active Substance: LACTOBACILLUS ACIDOPHILUS\LACTOBACILLUS DELBRUECKII SUBSP. BULGARICUS
  15. MIRALAX [Concomitant]
     Active Substance: POLYETHYLENE GLYCOL 3350
  16. PANTOPRAZOLE [Concomitant]
     Active Substance: PANTOPRAZOLE

REACTIONS (2)
  - Brain operation [None]
  - Disease progression [None]
